FAERS Safety Report 25484840 (Version 6)
Quarter: 2025Q3

REPORT INFORMATION
  Report Type: Report from Study
  Country: EU (occurrence: EU)
  Receive Date: 20250626
  Receipt Date: 20250929
  Transmission Date: 20251021
  Serious: Yes (Hospitalization, Other)
  Sender: MYLAN
  Company Number: EU-ROCHE-10000284855

PATIENT
  Age: 68 Year
  Sex: Female

DRUGS (104)
  1. PREDNISONE [Suspect]
     Active Substance: PREDNISONE
     Indication: Diffuse large B-cell lymphoma
  2. PREDNISONE [Suspect]
     Active Substance: PREDNISONE
  3. PREDNISONE [Suspect]
     Active Substance: PREDNISONE
     Route: 065
  4. PREDNISONE [Suspect]
     Active Substance: PREDNISONE
     Route: 065
  5. PREDNISONE [Suspect]
     Active Substance: PREDNISONE
  6. PREDNISONE [Suspect]
     Active Substance: PREDNISONE
  7. PREDNISONE [Suspect]
     Active Substance: PREDNISONE
     Route: 065
  8. PREDNISONE [Suspect]
     Active Substance: PREDNISONE
     Route: 065
  9. POLATUZUMAB VEDOTIN [Suspect]
     Active Substance: POLATUZUMAB VEDOTIN
     Indication: Diffuse large B-cell lymphoma
     Dosage: 140 MG/KG, Q21D (DATE OF MOST RECENT DOSE OF POLATUZUMAB VEDOTIN PRIOR TO EVENT ONSET: 02-MAY-2025)
     Dates: start: 20250410
  10. POLATUZUMAB VEDOTIN [Suspect]
     Active Substance: POLATUZUMAB VEDOTIN
     Dosage: 140 MG/KG, Q21D (DATE OF MOST RECENT DOSE OF POLATUZUMAB VEDOTIN PRIOR TO EVENT ONSET: 02-MAY-2025)
     Dates: start: 20250410
  11. POLATUZUMAB VEDOTIN [Suspect]
     Active Substance: POLATUZUMAB VEDOTIN
     Dosage: 140 MG/KG, Q21D (DATE OF MOST RECENT DOSE OF POLATUZUMAB VEDOTIN PRIOR TO EVENT ONSET: 02-MAY-2025)
     Route: 042
     Dates: start: 20250410
  12. POLATUZUMAB VEDOTIN [Suspect]
     Active Substance: POLATUZUMAB VEDOTIN
     Dosage: 140 MG/KG, Q21D (DATE OF MOST RECENT DOSE OF POLATUZUMAB VEDOTIN PRIOR TO EVENT ONSET: 02-MAY-2025)
     Route: 042
     Dates: start: 20250410
  13. POLATUZUMAB VEDOTIN [Suspect]
     Active Substance: POLATUZUMAB VEDOTIN
     Dosage: 140 MILLIGRAM/KILOGRAM, Q21D
     Route: 042
     Dates: start: 20250523
  14. POLATUZUMAB VEDOTIN [Suspect]
     Active Substance: POLATUZUMAB VEDOTIN
     Dosage: 140 MILLIGRAM/KILOGRAM, Q21D
     Route: 042
     Dates: start: 20250523
  15. POLATUZUMAB VEDOTIN [Suspect]
     Active Substance: POLATUZUMAB VEDOTIN
     Dosage: 140 MILLIGRAM/KILOGRAM, Q21D
     Dates: start: 20250523
  16. POLATUZUMAB VEDOTIN [Suspect]
     Active Substance: POLATUZUMAB VEDOTIN
     Dosage: 140 MILLIGRAM/KILOGRAM, Q21D
     Dates: start: 20250523
  17. POLATUZUMAB VEDOTIN [Suspect]
     Active Substance: POLATUZUMAB VEDOTIN
     Route: 042
  18. POLATUZUMAB VEDOTIN [Suspect]
     Active Substance: POLATUZUMAB VEDOTIN
     Route: 042
  19. POLATUZUMAB VEDOTIN [Suspect]
     Active Substance: POLATUZUMAB VEDOTIN
  20. POLATUZUMAB VEDOTIN [Suspect]
     Active Substance: POLATUZUMAB VEDOTIN
  21. POLATUZUMAB VEDOTIN [Suspect]
     Active Substance: POLATUZUMAB VEDOTIN
     Route: 042
  22. POLATUZUMAB VEDOTIN [Suspect]
     Active Substance: POLATUZUMAB VEDOTIN
     Route: 042
  23. POLATUZUMAB VEDOTIN [Suspect]
     Active Substance: POLATUZUMAB VEDOTIN
  24. POLATUZUMAB VEDOTIN [Suspect]
     Active Substance: POLATUZUMAB VEDOTIN
  25. POLATUZUMAB VEDOTIN [Suspect]
     Active Substance: POLATUZUMAB VEDOTIN
  26. POLATUZUMAB VEDOTIN [Suspect]
     Active Substance: POLATUZUMAB VEDOTIN
  27. POLATUZUMAB VEDOTIN [Suspect]
     Active Substance: POLATUZUMAB VEDOTIN
     Route: 065
  28. POLATUZUMAB VEDOTIN [Suspect]
     Active Substance: POLATUZUMAB VEDOTIN
     Route: 065
  29. RITUXIMAB [Suspect]
     Active Substance: RITUXIMAB
     Indication: Diffuse large B-cell lymphoma
     Dosage: 500 MG/SQ. METER, Q21D (DATE OF MOST RECENT DOSE OF RITUXIMAB PRIOR TO EVENT ONSET: 30-APR-2025)
     Dates: start: 20250410
  30. RITUXIMAB [Suspect]
     Active Substance: RITUXIMAB
     Dosage: 500 MG/SQ. METER, Q21D (DATE OF MOST RECENT DOSE OF RITUXIMAB PRIOR TO EVENT ONSET: 30-APR-2025)
     Dates: start: 20250410
  31. RITUXIMAB [Suspect]
     Active Substance: RITUXIMAB
     Dosage: 500 MG/SQ. METER, Q21D (DATE OF MOST RECENT DOSE OF RITUXIMAB PRIOR TO EVENT ONSET: 30-APR-2025)
     Route: 042
     Dates: start: 20250410
  32. RITUXIMAB [Suspect]
     Active Substance: RITUXIMAB
     Dosage: 500 MG/SQ. METER, Q21D (DATE OF MOST RECENT DOSE OF RITUXIMAB PRIOR TO EVENT ONSET: 30-APR-2025)
     Route: 042
     Dates: start: 20250410
  33. RITUXIMAB [Suspect]
     Active Substance: RITUXIMAB
     Dosage: 500 MILLIGRAM/SQ. METER, Q21D
     Dates: start: 20250522
  34. RITUXIMAB [Suspect]
     Active Substance: RITUXIMAB
     Dosage: 500 MILLIGRAM/SQ. METER, Q21D
     Dates: start: 20250522
  35. RITUXIMAB [Suspect]
     Active Substance: RITUXIMAB
     Dosage: 500 MILLIGRAM/SQ. METER, Q21D
     Route: 042
     Dates: start: 20250522
  36. RITUXIMAB [Suspect]
     Active Substance: RITUXIMAB
     Dosage: 500 MILLIGRAM/SQ. METER, Q21D
     Route: 042
     Dates: start: 20250522
  37. RITUXIMAB [Suspect]
     Active Substance: RITUXIMAB
  38. RITUXIMAB [Suspect]
     Active Substance: RITUXIMAB
     Route: 065
  39. RITUXIMAB [Suspect]
     Active Substance: RITUXIMAB
  40. RITUXIMAB [Suspect]
     Active Substance: RITUXIMAB
     Route: 065
  41. DOXORUBICIN [Suspect]
     Active Substance: DOXORUBICIN
     Indication: Diffuse large B-cell lymphoma
     Dosage: 10 MG/SQ. METER, Q21D (DATE OF MOST RECENT DOSE OF DOXORUBICIN PRIOR TO EVENT ONSET: 02-MAY-2025)
     Dates: start: 20250410
  42. DOXORUBICIN [Suspect]
     Active Substance: DOXORUBICIN
     Dosage: 10 MG/SQ. METER, Q21D (DATE OF MOST RECENT DOSE OF DOXORUBICIN PRIOR TO EVENT ONSET: 02-MAY-2025)
     Dates: start: 20250410
  43. DOXORUBICIN [Suspect]
     Active Substance: DOXORUBICIN
     Dosage: 10 MG/SQ. METER, Q21D (DATE OF MOST RECENT DOSE OF DOXORUBICIN PRIOR TO EVENT ONSET: 02-MAY-2025)
     Route: 042
     Dates: start: 20250410
  44. DOXORUBICIN [Suspect]
     Active Substance: DOXORUBICIN
     Dosage: 10 MG/SQ. METER, Q21D (DATE OF MOST RECENT DOSE OF DOXORUBICIN PRIOR TO EVENT ONSET: 02-MAY-2025)
     Route: 042
     Dates: start: 20250410
  45. DOXORUBICIN [Suspect]
     Active Substance: DOXORUBICIN
     Dosage: 10 MILLIGRAM/SQ. METER, Q21D
     Dates: start: 20250523
  46. DOXORUBICIN [Suspect]
     Active Substance: DOXORUBICIN
     Dosage: 10 MILLIGRAM/SQ. METER, Q21D
     Dates: start: 20250523
  47. DOXORUBICIN [Suspect]
     Active Substance: DOXORUBICIN
     Dosage: 10 MILLIGRAM/SQ. METER, Q21D
     Route: 042
     Dates: start: 20250523
  48. DOXORUBICIN [Suspect]
     Active Substance: DOXORUBICIN
     Dosage: 10 MILLIGRAM/SQ. METER, Q21D
     Route: 042
     Dates: start: 20250523
  49. DOXORUBICIN [Suspect]
     Active Substance: DOXORUBICIN
  50. DOXORUBICIN [Suspect]
     Active Substance: DOXORUBICIN
     Route: 065
  51. DOXORUBICIN [Suspect]
     Active Substance: DOXORUBICIN
  52. DOXORUBICIN [Suspect]
     Active Substance: DOXORUBICIN
     Route: 065
  53. CYCLOPHOSPHAMIDE [Suspect]
     Active Substance: CYCLOPHOSPHAMIDE
     Indication: Diffuse large B-cell lymphoma
     Dosage: 1000 MG/SQ. METER, Q21D (DATE OF MOST RECENT DOSE OF CYCLOPHOSPHAMIDE PRIOR TO EVENT ONSET: 02-MAY)
     Dates: start: 20250410
  54. CYCLOPHOSPHAMIDE [Suspect]
     Active Substance: CYCLOPHOSPHAMIDE
     Dosage: 1000 MG/SQ. METER, Q21D (DATE OF MOST RECENT DOSE OF CYCLOPHOSPHAMIDE PRIOR TO EVENT ONSET: 02-MAY)
     Dates: start: 20250410
  55. CYCLOPHOSPHAMIDE [Suspect]
     Active Substance: CYCLOPHOSPHAMIDE
     Dosage: 1000 MG/SQ. METER, Q21D (DATE OF MOST RECENT DOSE OF CYCLOPHOSPHAMIDE PRIOR TO EVENT ONSET: 02-MAY)
     Route: 042
     Dates: start: 20250410
  56. CYCLOPHOSPHAMIDE [Suspect]
     Active Substance: CYCLOPHOSPHAMIDE
     Dosage: 1000 MG/SQ. METER, Q21D (DATE OF MOST RECENT DOSE OF CYCLOPHOSPHAMIDE PRIOR TO EVENT ONSET: 02-MAY)
     Route: 042
     Dates: start: 20250410
  57. CYCLOPHOSPHAMIDE [Suspect]
     Active Substance: CYCLOPHOSPHAMIDE
     Dosage: 1000 MILLIGRAM/SQ. METER, Q21D
     Dates: start: 20250523
  58. CYCLOPHOSPHAMIDE [Suspect]
     Active Substance: CYCLOPHOSPHAMIDE
     Dosage: 1000 MILLIGRAM/SQ. METER, Q21D
     Dates: start: 20250523
  59. CYCLOPHOSPHAMIDE [Suspect]
     Active Substance: CYCLOPHOSPHAMIDE
     Dosage: 1000 MILLIGRAM/SQ. METER, Q21D
     Route: 042
     Dates: start: 20250523
  60. CYCLOPHOSPHAMIDE [Suspect]
     Active Substance: CYCLOPHOSPHAMIDE
     Dosage: 1000 MILLIGRAM/SQ. METER, Q21D
     Route: 042
     Dates: start: 20250523
  61. CYCLOPHOSPHAMIDE [Suspect]
     Active Substance: CYCLOPHOSPHAMIDE
  62. CYCLOPHOSPHAMIDE [Suspect]
     Active Substance: CYCLOPHOSPHAMIDE
     Route: 065
  63. CYCLOPHOSPHAMIDE [Suspect]
     Active Substance: CYCLOPHOSPHAMIDE
  64. CYCLOPHOSPHAMIDE [Suspect]
     Active Substance: CYCLOPHOSPHAMIDE
     Route: 065
  65. PHENOBARBITAL [Concomitant]
     Active Substance: PHENOBARBITAL
     Indication: Product used for unknown indication
  66. PHENOBARBITAL [Concomitant]
     Active Substance: PHENOBARBITAL
     Route: 065
  67. PHENOBARBITAL [Concomitant]
     Active Substance: PHENOBARBITAL
     Route: 065
  68. PHENOBARBITAL [Concomitant]
     Active Substance: PHENOBARBITAL
  69. ASPIRIN LYSINE [Concomitant]
     Active Substance: ASPIRIN LYSINE
     Indication: Product used for unknown indication
  70. ASPIRIN LYSINE [Concomitant]
     Active Substance: ASPIRIN LYSINE
     Route: 065
  71. ASPIRIN LYSINE [Concomitant]
     Active Substance: ASPIRIN LYSINE
     Route: 065
  72. ASPIRIN LYSINE [Concomitant]
     Active Substance: ASPIRIN LYSINE
  73. DIETARY SUPPLEMENT [Concomitant]
     Active Substance: DIETARY SUPPLEMENT
  74. DIETARY SUPPLEMENT [Concomitant]
     Active Substance: DIETARY SUPPLEMENT
     Route: 065
  75. DIETARY SUPPLEMENT [Concomitant]
     Active Substance: DIETARY SUPPLEMENT
     Route: 065
  76. DIETARY SUPPLEMENT [Concomitant]
     Active Substance: DIETARY SUPPLEMENT
  77. ACLASTA [Concomitant]
     Active Substance: ZOLEDRONIC ACID
     Indication: Product used for unknown indication
  78. ACLASTA [Concomitant]
     Active Substance: ZOLEDRONIC ACID
     Route: 065
  79. ACLASTA [Concomitant]
     Active Substance: ZOLEDRONIC ACID
     Route: 065
  80. ACLASTA [Concomitant]
     Active Substance: ZOLEDRONIC ACID
  81. ENALAPRIL MALEATE\HYDROCHLOROTHIAZIDE [Concomitant]
     Active Substance: ENALAPRIL MALEATE\HYDROCHLOROTHIAZIDE
     Indication: Product used for unknown indication
  82. ENALAPRIL MALEATE\HYDROCHLOROTHIAZIDE [Concomitant]
     Active Substance: ENALAPRIL MALEATE\HYDROCHLOROTHIAZIDE
     Route: 065
  83. ENALAPRIL MALEATE\HYDROCHLOROTHIAZIDE [Concomitant]
     Active Substance: ENALAPRIL MALEATE\HYDROCHLOROTHIAZIDE
     Route: 065
  84. ENALAPRIL MALEATE\HYDROCHLOROTHIAZIDE [Concomitant]
     Active Substance: ENALAPRIL MALEATE\HYDROCHLOROTHIAZIDE
  85. NORVASC [Concomitant]
     Active Substance: AMLODIPINE BESYLATE
     Indication: Product used for unknown indication
  86. NORVASC [Concomitant]
     Active Substance: AMLODIPINE BESYLATE
     Route: 065
  87. NORVASC [Concomitant]
     Active Substance: AMLODIPINE BESYLATE
     Route: 065
  88. NORVASC [Concomitant]
     Active Substance: AMLODIPINE BESYLATE
  89. ACYCLOVIR [Concomitant]
     Active Substance: ACYCLOVIR
     Indication: Product used for unknown indication
  90. ACYCLOVIR [Concomitant]
     Active Substance: ACYCLOVIR
     Route: 065
  91. ACYCLOVIR [Concomitant]
     Active Substance: ACYCLOVIR
     Route: 065
  92. ACYCLOVIR [Concomitant]
     Active Substance: ACYCLOVIR
  93. BACTRIM [Concomitant]
     Active Substance: SULFAMETHOXAZOLE\TRIMETHOPRIM
     Indication: Product used for unknown indication
  94. BACTRIM [Concomitant]
     Active Substance: SULFAMETHOXAZOLE\TRIMETHOPRIM
     Route: 065
  95. BACTRIM [Concomitant]
     Active Substance: SULFAMETHOXAZOLE\TRIMETHOPRIM
     Route: 065
  96. BACTRIM [Concomitant]
     Active Substance: SULFAMETHOXAZOLE\TRIMETHOPRIM
  97. FILGRASTIM [Concomitant]
     Active Substance: FILGRASTIM
     Indication: Product used for unknown indication
  98. FILGRASTIM [Concomitant]
     Active Substance: FILGRASTIM
     Route: 065
  99. FILGRASTIM [Concomitant]
     Active Substance: FILGRASTIM
     Route: 065
  100. FILGRASTIM [Concomitant]
     Active Substance: FILGRASTIM
  101. PIPERACILLIN SODIUM\TAZOBACTAM SODIUM [Concomitant]
     Active Substance: PIPERACILLIN SODIUM\TAZOBACTAM SODIUM
  102. PIPERACILLIN SODIUM\TAZOBACTAM SODIUM [Concomitant]
     Active Substance: PIPERACILLIN SODIUM\TAZOBACTAM SODIUM
     Route: 065
  103. PIPERACILLIN SODIUM\TAZOBACTAM SODIUM [Concomitant]
     Active Substance: PIPERACILLIN SODIUM\TAZOBACTAM SODIUM
     Route: 065
  104. PIPERACILLIN SODIUM\TAZOBACTAM SODIUM [Concomitant]
     Active Substance: PIPERACILLIN SODIUM\TAZOBACTAM SODIUM

REACTIONS (5)
  - Fall [Unknown]
  - Thrombocytopenia [Recovered/Resolved]
  - Febrile neutropenia [Recovered/Resolved]
  - Anaemia [Recovered/Resolved]
  - Vomiting [Recovered/Resolved]

NARRATIVE: CASE EVENT DATE: 20250503
